FAERS Safety Report 14025731 (Version 1)
Quarter: 2017Q3

REPORT INFORMATION
  Report Type: Spontaneous
  Country: US (occurrence: US)
  Receive Date: 20170929
  Receipt Date: 20170929
  Transmission Date: 20171128
  Serious: No
  Sender: FDA-Public Use
  Company Number: US-SA-2017SA046565

PATIENT
  Age: 53 Year
  Sex: Male

DRUGS (11)
  1. BENAZEPRIL [Concomitant]
     Active Substance: BENAZEPRIL HYDROCHLORIDE
  2. TOPROL XL [Concomitant]
     Active Substance: METOPROLOL SUCCINATE
  3. AUBAGIO [Suspect]
     Active Substance: TERIFLUNOMIDE
     Indication: MULTIPLE SCLEROSIS
     Route: 048
     Dates: start: 20161215
  4. CIALIS [Concomitant]
     Active Substance: TADALAFIL
  5. PROZAC [Concomitant]
     Active Substance: FLUOXETINE HYDROCHLORIDE
  6. BYDUREON [Concomitant]
     Active Substance: EXENATIDE
  7. CRANBERRY. [Concomitant]
     Active Substance: CRANBERRY
  8. PIOGLITAZONE. [Concomitant]
     Active Substance: PIOGLITAZONE
  9. PANTHENOL/RETINOL/THIAMINE HYDROCHLORIDE/ASCORBIC ACID/ERGOCALCIFEROL/FOLIC ACID/RIBOFLAVIN/NICOTINA [Concomitant]
  10. METFORMIN [Concomitant]
     Active Substance: METFORMIN HYDROCHLORIDE
  11. TOPAMAX [Concomitant]
     Active Substance: TOPIRAMATE

REACTIONS (3)
  - Balance disorder [Unknown]
  - Fall [Unknown]
  - Depression [Unknown]

NARRATIVE: CASE EVENT DATE: 20170310
